FAERS Safety Report 14487802 (Version 2)
Quarter: 2018Q1

REPORT INFORMATION
  Report Type: Spontaneous
  Country: US (occurrence: US)
  Receive Date: 20180205
  Receipt Date: 20180312
  Transmission Date: 20180509
  Serious: Yes (Other)
  Sender: FDA-Public Use
  Company Number: US-PFIZER INC-2018043346

PATIENT
  Sex: Female

DRUGS (2)
  1. PREMPRO [Suspect]
     Active Substance: ESTROGENS, CONJUGATED\MEDROXYPROGESTERONE ACETATE
     Dosage: UNK[ESTROGENS CONJUGATED: 0.625MG/MEDROXYPROGESTERONE ACETATE: 5MG]
  2. PREMPRO [Suspect]
     Active Substance: ESTROGENS, CONJUGATED\MEDROXYPROGESTERONE ACETATE
     Dosage: UNK[ESTROGENS CONJUGATED: 0.625MG/MEDROXYPROGESTERONE ACETATE: 2.5MG]

REACTIONS (5)
  - Depressed mood [Unknown]
  - Metrorrhagia [Unknown]
  - Irritability [Unknown]
  - Suicidal behaviour [Unknown]
  - Drug dispensing error [Unknown]
